FAERS Safety Report 24073664 (Version 2)
Quarter: 2024Q4

REPORT INFORMATION
  Report Type: Spontaneous
  Country: US (occurrence: US)
  Receive Date: 20240710
  Receipt Date: 20241009
  Transmission Date: 20250115
  Serious: No
  Sender: PAREXEL
  Company Number: US-NOVEN PHARMACEUTICALS, INC.-2024-NOV-US000676

PATIENT
  Sex: Male

DRUGS (1)
  1. XELSTRYM [Suspect]
     Active Substance: DEXTROAMPHETAMINE
     Indication: Attention deficit hyperactivity disorder
     Dosage: UNKNOWN, UNK
     Route: 062

REACTIONS (5)
  - Product dose omission issue [Recovered/Resolved]
  - Product physical issue [Recovered/Resolved]
  - Device issue [Recovered/Resolved]
  - Product adhesion issue [Recovered/Resolved]
  - No adverse event [Unknown]
